FAERS Safety Report 15026704 (Version 1)
Quarter: 2018Q2

REPORT INFORMATION
  Report Type: Spontaneous
  Country: US (occurrence: US)
  Receive Date: 20180618
  Receipt Date: 20180618
  Transmission Date: 20180711
  Serious: Yes (Hospitalization, Other)
  Sender: FDA-Public Use
  Company Number: US-SA-2018SA138254

PATIENT
  Age: 51 Year
  Sex: Female

DRUGS (5)
  1. DIPHENHYDRAMINE HYDROCHLORIDE. [Suspect]
     Active Substance: DIPHENHYDRAMINE HYDROCHLORIDE
     Dosage: UNK
  2. EPINEPHRINE. [Suspect]
     Active Substance: EPINEPHRINE
     Dosage: UNK
  3. ALBUTEROL HFA [Suspect]
     Active Substance: ALBUTEROL SULFATE
     Dosage: 180 UG
  4. OXYGEN. [Concomitant]
     Active Substance: OXYGEN
     Dosage: UNK
     Route: 045
  5. EPINEPHRINE. [Suspect]
     Active Substance: EPINEPHRINE
     Dosage: .6 MG, 2 SHOTS OF 0.3 MG

REACTIONS (5)
  - Tongue injury [Recovering/Resolving]
  - Hypotension [Recovering/Resolving]
  - Seizure [Recovering/Resolving]
  - Unresponsive to stimuli [Recovering/Resolving]
  - Incontinence [Recovering/Resolving]
